FAERS Safety Report 18666145 (Version 1)
Quarter: 2020Q4

REPORT INFORMATION
  Report Type: Spontaneous
  Country: DE (occurrence: DE)
  Receive Date: 20201226
  Receipt Date: 20201226
  Transmission Date: 20210114
  Serious: Yes (Death, Hospitalization)
  Sender: FDA-Public Use
  Company Number: DE-TEVA-2020-DE-1860911

PATIENT
  Age: 56 Year
  Sex: Male

DRUGS (8)
  1. FOLSAURE [Concomitant]
     Active Substance: FOLIC ACID
     Dosage: 10 MILLIGRAM DAILY;  1-0-1-0
  2. PEMETREXED. [Suspect]
     Active Substance: PEMETREXED
     Route: 065
  3. ONDANSETRON [Concomitant]
     Active Substance: ONDANSETRON
     Dosage: 16 MILLIGRAM DAILY;  1-0-1-0
  4. LEVETIRACETAM. [Concomitant]
     Active Substance: LEVETIRACETAM
     Dosage: 1000 MILLIGRAM DAILY; 1-0-1-0
  5. CANDESARTAN. [Concomitant]
     Active Substance: CANDESARTAN
     Dosage: 8 MILLIGRAM DAILY; 1-0-0-0
  6. CISPLATIN. [Suspect]
     Active Substance: CISPLATIN
     Route: 065
  7. PEMBROLIZUMAB. [Suspect]
     Active Substance: PEMBROLIZUMAB
     Route: 065
  8. DEXAMETHASON [Suspect]
     Active Substance: DEXAMETHASONE
     Dosage: 1.5 DOSAGE FORMS DAILY; 4 MG, 0.5-0.5-0.5-0
     Route: 065

REACTIONS (7)
  - Renal impairment [Unknown]
  - Dysphagia [Unknown]
  - Oral candidiasis [Unknown]
  - General physical health deterioration [Unknown]
  - Paraesthesia [Unknown]
  - Ageusia [Unknown]
  - Cushingoid [Unknown]
